FAERS Safety Report 4712076-2 (Version None)
Quarter: 2005Q2

REPORT INFORMATION
  Report Type: 
  Country: None (occurrence: None)
  Receive Date: 20050629
  Receipt Date: 20050407
  Transmission Date: 20051028
  Serious: No
  Sender: FDA-Public Use
  Company Number: 05P-163-0296728-00

PATIENT
  Sex: Female
  Weight: 68.0396 kg

DRUGS (6)
  1. HUMIRA [Suspect]
     Indication: RHEUMATOID ARTHRITIS
     Dosage: 40 MG, 1 IN 1 WK, 1 IN 2 WK
     Dates: start: 20030501, end: 20040201
  2. HUMIRA [Suspect]
     Indication: RHEUMATOID ARTHRITIS
     Dosage: 40 MG, 1 IN 1 WK, 1 IN 2 WK
     Dates: start: 20040219
  3. PREDNISONE [Concomitant]
  4. FOLIC ACID [Concomitant]
  5. FUROSEMIDE [Concomitant]
  6. OMEPRAZOLE [Concomitant]

REACTIONS (2)
  - PRURITUS [None]
  - RASH [None]
